FAERS Safety Report 14502784 (Version 1)
Quarter: 2018Q1

REPORT INFORMATION
  Report Type: Spontaneous
  Country: SK (occurrence: SK)
  Receive Date: 20180208
  Receipt Date: 20180208
  Transmission Date: 20180509
  Serious: Yes (Hospitalization)
  Sender: FDA-Public Use
  Company Number: SK-ORION CORPORATION ORION PHARMA-18_00002905

PATIENT
  Age: 77 Year

DRUGS (1)
  1. CORBILTA [Suspect]
     Active Substance: CARBIDOPA\ENTACAPONE\LEVODOPA
     Dosage: STRENGTH: 100/25/200 MG
     Route: 065

REACTIONS (1)
  - Oedema peripheral [Recovering/Resolving]
